FAERS Safety Report 8756580 (Version 3)
Quarter: 2013Q1

REPORT INFORMATION
  Report Type: Report from Study
  Country: DK (occurrence: DK)
  Receive Date: 20120828
  Receipt Date: 20130327
  Transmission Date: 20140127
  Serious: Yes (Hospitalization)
  Sender: FDA-Public Use
  Company Number: DK-009507513-0909DNK00011

PATIENT
  Age: 53 Year
  Sex: Male

DRUGS (5)
  1. PLACEBO [Suspect]
     Indication: HIGH DENSITY LIPOPROTEIN DECREASED
     Dosage: UNK
     Route: 048
     Dates: start: 20070823, end: 20090826
  2. VYTORIN [Suspect]
     Indication: HYPERCHOLESTEROLAEMIA
     Dosage: 10-40 MG, QD
     Route: 048
     Dates: start: 20070605
  3. UNSPECIFIED [Suspect]
     Indication: HIGH DENSITY LIPOPROTEIN DECREASED
     Dosage: 1 G, QD
     Route: 048
     Dates: start: 20070628, end: 20070725
  4. UNSPECIFIED [Suspect]
     Dosage: 2 G, QD
     Route: 048
     Dates: start: 20070726, end: 20070822
  5. ASPIRIN [Concomitant]

REACTIONS (1)
  - Presyncope [Recovered/Resolved]
